FAERS Safety Report 5137687-4 (Version None)
Quarter: 2006Q4

REPORT INFORMATION
  Report Type: 
  Country: None (occurrence: None)
  Receive Date: 20061030
  Receipt Date: 20051215
  Transmission Date: 20070319
  Serious: No
  Sender: FDA-Public Use
  Company Number: US-GLAXOSMITHKLINE-A0585983A

PATIENT
  Age: 69 Year
  Sex: Female

DRUGS (8)
  1. ADVAIR HFA [Suspect]
     Indication: EMPHYSEMA
     Dosage: 1PUFF TWICE PER DAY
     Route: 055
     Dates: start: 20040501
  2. SPIRIVA [Concomitant]
  3. ALBUTEROL [Concomitant]
  4. BISOPROLOL FUMARATE [Concomitant]
  5. ZOCOR [Concomitant]
  6. OXYCONTIN [Concomitant]
  7. ASPIRIN [Concomitant]
  8. PREDNISONE TAB [Concomitant]

REACTIONS (2)
  - DYSPNOEA [None]
  - SOMNOLENCE [None]
